FAERS Safety Report 19193818 (Version 3)
Quarter: 2021Q2

REPORT INFORMATION
  Report Type: Report from Study
  Country: AR (occurrence: AR)
  Receive Date: 20210429
  Receipt Date: 20210617
  Transmission Date: 20210717
  Serious: Yes (Hospitalization, Other)
  Sender: FDA-Public Use
  Company Number: NVSC2021AR090915

PATIENT
  Age: 50 Year
  Sex: Female

DRUGS (6)
  1. ERYTHROPOIETIN [Concomitant]
     Active Substance: ERYTHROPOIETIN
     Indication: PRODUCT USED FOR UNKNOWN INDICATION
     Dosage: UNK
     Route: 065
     Dates: start: 202105
  2. DELTISONE [Concomitant]
     Indication: PRODUCT USED FOR UNKNOWN INDICATION
     Dosage: 24 MG
     Route: 065
  3. CERTICAN [Suspect]
     Active Substance: EVEROLIMUS
     Indication: IMMUNOSUPPRESSION
     Dosage: 0.5 MG, BID
     Route: 048
     Dates: start: 20191201
  4. CERTICAN [Suspect]
     Active Substance: EVEROLIMUS
     Dosage: UNK
     Route: 065
  5. CALCITRIOL. [Concomitant]
     Active Substance: CALCITRIOL
     Indication: PRODUCT USED FOR UNKNOWN INDICATION
     Dosage: UNK
     Route: 065
  6. CERTICAN [Suspect]
     Active Substance: EVEROLIMUS
     Dosage: 1 IU, QD
     Route: 048

REACTIONS (17)
  - Weight decreased [Unknown]
  - Diarrhoea [Unknown]
  - Pancreatic cyst [Not Recovered/Not Resolved]
  - Enteritis [Unknown]
  - Pleural effusion [Unknown]
  - Blood creatinine increased [Not Recovered/Not Resolved]
  - Clostridium difficile infection [Unknown]
  - Malabsorption [Unknown]
  - Colitis [Unknown]
  - Drug level decreased [Not Recovered/Not Resolved]
  - Abdominal pain [Unknown]
  - Intestinal obstruction [Unknown]
  - Acute abdomen [Recovering/Resolving]
  - Peritonitis [Unknown]
  - Nosocomial infection [Unknown]
  - Postoperative adhesion [Unknown]
  - Dyspepsia [Unknown]

NARRATIVE: CASE EVENT DATE: 202005
